FAERS Safety Report 13260855 (Version 2)
Quarter: 2017Q1

REPORT INFORMATION
  Report Type: Spontaneous
  Country: IN (occurrence: IN)
  Receive Date: 20170222
  Receipt Date: 20170227
  Transmission Date: 20170428
  Serious: Yes (Death)
  Sender: FDA-Public Use
  Company Number: IN-ASTRAZENECA-2017SE18544

PATIENT
  Age: 17482 Day
  Sex: Female

DRUGS (1)
  1. FASLODEX [Suspect]
     Active Substance: FULVESTRANT
     Indication: BREAST CANCER
     Dosage: 500.0MG UNKNOWN
     Route: 030
     Dates: start: 20161026, end: 20170124

REACTIONS (1)
  - Death [Fatal]

NARRATIVE: CASE EVENT DATE: 20170203
